FAERS Safety Report 5861561-9 (Version None)
Quarter: 2008Q3

REPORT INFORMATION
  Report Type: 
  Country: None (occurrence: None)
  Receive Date: 20080827
  Receipt Date: 20080609
  Transmission Date: 20090109
  Serious: No
  Sender: FDA-Public Use
  Company Number: US-ABBOTT-08P-163-0455820-00

PATIENT
  Sex: Male
  Weight: 88.53 kg

DRUGS (2)
  1. NIASPAN [Suspect]
     Indication: HIGH DENSITY LIPOPROTEIN DECREASED
     Route: 048
     Dates: start: 20070101, end: 20070101
  2. NIASPAN [Suspect]
     Route: 048
     Dates: start: 20070101, end: 20070101

REACTIONS (2)
  - FLUSHING [None]
  - PARAESTHESIA [None]
